FAERS Safety Report 12271209 (Version 1)
Quarter: 2016Q2

REPORT INFORMATION
  Report Type: Spontaneous
  Country: US (occurrence: US)
  Receive Date: 20160415
  Receipt Date: 20160415
  Transmission Date: 20160815
  Serious: No
  Sender: FDA-Public Use
  Company Number: US-PFM-US-2016-1047

PATIENT
  Sex: Female
  Weight: 10.06 kg

DRUGS (2)
  1. HEMANGEOL [Suspect]
     Active Substance: PROPRANOLOL HYDROCHLORIDE
     Indication: INFANTILE HAEMANGIOMA
     Dosage: UNK
     Route: 048
     Dates: start: 20160515
  2. HEMANGEOL [Suspect]
     Active Substance: PROPRANOLOL HYDROCHLORIDE
     Dosage: 3.4 ML, BID (2/DAY)
     Route: 048

REACTIONS (2)
  - Agitation [Unknown]
  - Intentional product misuse [Unknown]
